FAERS Safety Report 6175505-6 (Version None)
Quarter: 2009Q2

REPORT INFORMATION
  Report Type: 
  Country: None (occurrence: None)
  Receive Date: 20090429
  Receipt Date: 20090421
  Transmission Date: 20091009
  Serious: Yes (Other)
  Sender: FDA-Public Use
  Company Number: GXKR2009DE04131

PATIENT
  Age: 76 Year
  Sex: Male

DRUGS (5)
  1. AMLODIPINE [Suspect]
     Indication: HYPERTENSION
     Dosage: ORAL
     Route: 048
  2. ENALAPRIL MALEATE [Concomitant]
  3. COAPPROVEL (HYDROCHLOROTHIAZIDE, IRBESARTAN) [Concomitant]
  4. TORSEMIDE [Concomitant]
  5. ALLERGOPOS (ANTAZOLINE PHOSPHATE, ROSA ALBA EXTRACT, ROSA CANINA EXTRA [Concomitant]

REACTIONS (4)
  - GLAUCOMA [None]
  - PSEUDOPHAKIA [None]
  - VISION BLURRED [None]
  - VITREOUS HAEMORRHAGE [None]
